FAERS Safety Report 7503692-3 (Version None)
Quarter: 2011Q2

REPORT INFORMATION
  Report Type: 
  Country: None (occurrence: None)
  Receive Date: 20110525
  Receipt Date: 20110503
  Transmission Date: 20111010
  Serious: Yes (Other)
  Sender: FDA-Public Use
  Company Number: IT-JNJFOC-20110504393

PATIENT
  Age: 21 Year
  Sex: Male

DRUGS (7)
  1. RITUXIMAB [Suspect]
     Indication: B-CELL LYMPHOMA
     Route: 065
  2. CYCLOPHOSPHAMIDE [Suspect]
     Indication: B-CELL LYMPHOMA
     Route: 065
  3. CYTARABINE [Suspect]
     Indication: PROPHYLAXIS
     Route: 065
  4. PREDNISONE [Suspect]
     Indication: B-CELL LYMPHOMA
     Route: 065
  5. VINCRISTINE [Suspect]
     Indication: B-CELL LYMPHOMA
     Route: 065
  6. DOXORUBICIN HYDROCHLORIDE [Suspect]
     Indication: B-CELL LYMPHOMA
     Route: 042
  7. BETAMETHASONE [Suspect]
     Indication: PROPHYLAXIS
     Route: 037

REACTIONS (3)
  - VIRAL UVEITIS [None]
  - DRUG EFFECT DECREASED [None]
  - RETINAL DETACHMENT [None]
